FAERS Safety Report 9457440 (Version 1)
Quarter: 2013Q3

REPORT INFORMATION
  Report Type: Spontaneous
  Country: US (occurrence: None)
  Receive Date: 20130812
  Receipt Date: 20130812
  Transmission Date: 20140515
  Serious: Yes (Hospitalization)
  Sender: FDA-Public Use
  Company Number: None

PATIENT
  Age: 57 Year
  Sex: Male
  Weight: 136.08 kg

DRUGS (1)
  1. INVOKANA [Suspect]
     Indication: DIABETES MELLITUS
     Dosage: 1 PILL  ONCE DAILY  TAKEN BY MOUTH?07/26/2013 - 08/26/2013
     Route: 048
     Dates: start: 20130726, end: 20130826

REACTIONS (2)
  - Hypersensitivity [None]
  - Renal failure [None]
